FAERS Safety Report 8212027-2 (Version None)
Quarter: 2012Q1

REPORT INFORMATION
  Report Type: 
  Country: None (occurrence: None)
  Receive Date: 20120315
  Receipt Date: 20120312
  Transmission Date: 20120608
  Serious: No
  Sender: FDA-Public Use
  Company Number: US-PFIZER INC-2012065266

PATIENT
  Sex: Female
  Weight: 68.934 kg

DRUGS (5)
  1. ADVIL COLD AND SINUS [Suspect]
     Indication: SINUS DISORDER
  2. ADVIL COLD AND SINUS [Suspect]
     Indication: SNEEZING
  3. ADVIL COLD AND SINUS [Suspect]
     Indication: NASOPHARYNGITIS
     Dosage: 200 MG/30 MG, 2X/DAY
     Route: 048
     Dates: start: 20120301, end: 20120311
  4. ADVIL COLD AND SINUS [Suspect]
  5. ADVIL COLD AND SINUS [Suspect]
     Indication: RHINORRHOEA

REACTIONS (1)
  - DRUG INEFFECTIVE [None]
